FAERS Safety Report 9448581 (Version 1)
Quarter: 2013Q3

REPORT INFORMATION
  Report Type: Spontaneous
  Country: US (occurrence: None)
  Receive Date: 20130808
  Receipt Date: 20130808
  Transmission Date: 20140515
  Serious: Yes (Other)
  Sender: FDA-Public Use
  Company Number: None

PATIENT
  Age: 46 Year
  Sex: Male

DRUGS (1)
  1. CALCIUM GLUCONATE [Suspect]
     Route: 042
     Dates: start: 20130719, end: 20130719

REACTIONS (2)
  - Blood culture positive [None]
  - Product contamination [None]
